FAERS Safety Report 5068639-0 (Version None)
Quarter: 2006Q3

REPORT INFORMATION
  Report Type: 
  Country: None (occurrence: None)
  Receive Date: 20060802
  Receipt Date: 20060120
  Transmission Date: 20061208
  Serious: Yes (Other)
  Sender: FDA-Public Use
  Company Number: US-BRISTOL-MYERS SQUIBB COMPANY-13255237

PATIENT
  Age: 76 Year
  Sex: Male
  Weight: 86 kg

DRUGS (5)
  1. COUMADIN [Suspect]
     Indication: AORTIC VALVE REPLACEMENT
     Dates: start: 19960415
  2. LASIX [Concomitant]
  3. LEVODOPA [Concomitant]
  4. PROSCAR [Concomitant]
     Dates: end: 20050701
  5. CORTISONE [Concomitant]

REACTIONS (2)
  - HAEMATURIA [None]
  - INTERNATIONAL NORMALISED RATIO INCREASED [None]
